FAERS Safety Report 7549753-4 (Version None)
Quarter: 2011Q2

REPORT INFORMATION
  Report Type: 
  Country: None (occurrence: None)
  Receive Date: 20110615
  Receipt Date: 20060912
  Transmission Date: 20111010
  Serious: Yes (Hospitalization)
  Sender: FDA-Public Use
  Company Number: PHFR2006GB01646

PATIENT
  Sex: Female

DRUGS (1)
  1. CLOZAPINE [Suspect]
     Indication: SCHIZOPHRENIA
     Dosage: 450MG/DAY
     Route: 048
     Dates: start: 19910305

REACTIONS (4)
  - COLONIC POLYP [None]
  - PLATELET COUNT INCREASED [None]
  - COLON CANCER [None]
  - RECTAL HAEMORRHAGE [None]
